FAERS Safety Report 22370037 (Version 2)
Quarter: 2023Q4

REPORT INFORMATION
  Report Type: Report from Study
  Country: US (occurrence: US)
  Receive Date: 20230526
  Receipt Date: 20231219
  Transmission Date: 20240109
  Serious: Yes (Other)
  Sender: FDA-Public Use
  Company Number: US-ABBVIE-4744514

PATIENT
  Sex: Male

DRUGS (2)
  1. IMBRUVICA [Suspect]
     Active Substance: IBRUTINIB
     Indication: Chronic lymphocytic leukaemia
     Route: 048
     Dates: start: 20210617
  2. IMBRUVICA [Suspect]
     Active Substance: IBRUTINIB
     Indication: Chronic lymphocytic leukaemia
     Route: 048
     Dates: start: 20230427

REACTIONS (6)
  - Glaucoma [Unknown]
  - Dry skin [Unknown]
  - Blindness [Unknown]
  - Rash [Unknown]
  - Rhinorrhoea [Unknown]
  - Multimorbidity [Unknown]

NARRATIVE: CASE EVENT DATE: 20220101
